FAERS Safety Report 19122906 (Version 1)
Quarter: 2021Q2

REPORT INFORMATION
  Report Type: Spontaneous
  Country: TH (occurrence: TH)
  Receive Date: 20210412
  Receipt Date: 20210412
  Transmission Date: 20210717
  Serious: Yes (Death)
  Sender: FDA-Public Use
  Company Number: TH-ASTRAZENECA-2021A281586

PATIENT
  Age: 654 Month
  Sex: Female

DRUGS (1)
  1. TAGRISSO [Suspect]
     Active Substance: OSIMERTINIB
     Indication: LUNG NEOPLASM MALIGNANT
     Route: 048
     Dates: start: 20191022, end: 20210224

REACTIONS (3)
  - Dyspnoea [Fatal]
  - Pain [Fatal]
  - Urinary retention [Fatal]

NARRATIVE: CASE EVENT DATE: 202102
